FAERS Safety Report 6381870-7 (Version None)
Quarter: 2009Q3

REPORT INFORMATION
  Report Type: 
  Country: None (occurrence: None)
  Receive Date: 20090930
  Receipt Date: 20090921
  Transmission Date: 20100115
  Serious: Yes (Other)
  Sender: FDA-Public Use
  Company Number: US-JNJFOC-20090704340

PATIENT
  Sex: Female
  Weight: 101.61 kg

DRUGS (14)
  1. RISPERDAL [Suspect]
     Indication: PANIC ATTACK
     Route: 048
  2. ACIPHEX [Concomitant]
     Indication: GASTROOESOPHAGEAL REFLUX DISEASE
     Route: 048
  3. VITAMIN D [Concomitant]
     Dosage: 1 PILL 3 TIMES WEEKLY FOR 4 MONTHS
     Route: 048
  4. LOPRESSOR [Concomitant]
     Dosage: 1 PO IN THE AM AND NIGHTLY
     Route: 048
  5. LOPRESSOR [Concomitant]
     Indication: HYPERTENSION
     Route: 048
  6. SYNTHROID [Concomitant]
     Indication: THYROID DISORDER
     Route: 048
  7. ZOLOFT [Concomitant]
     Route: 048
  8. NEURONTIN [Concomitant]
     Route: 048
  9. SEROQUEL [Concomitant]
     Dosage: NIGHTLY
     Route: 048
  10. WELCHOL [Concomitant]
     Route: 048
  11. IBUPROFEN [Concomitant]
     Dosage: WITH FOOD AS NEEDED
     Route: 048
  12. VISTARIL [Concomitant]
     Dosage: AS NEEDED
     Route: 048
  13. PRAVASTATIN SODIUM [Concomitant]
     Indication: BLOOD CHOLESTEROL
     Route: 048
  14. AMLODIPINE BESYLATE [Concomitant]
     Route: 048

REACTIONS (7)
  - BLOOD GLUCOSE INCREASED [None]
  - DEPRESSION [None]
  - DYSPAREUNIA [None]
  - GASTROOESOPHAGEAL REFLUX DISEASE [None]
  - PANIC ATTACK [None]
  - SLEEP DISORDER [None]
  - SWOLLEN TONGUE [None]
